FAERS Safety Report 9844103 (Version 1)
Quarter: 2014Q1

REPORT INFORMATION
  Report Type: Spontaneous
  Country: TW (occurrence: TW)
  Receive Date: 20140127
  Receipt Date: 20140127
  Transmission Date: 20141002
  Serious: Yes (Hospitalization, Other)
  Sender: FDA-Public Use
  Company Number: TW-ROCHE-1338137

PATIENT
  Age: 62 Year
  Sex: Male

DRUGS (10)
  1. CAPECITABINE [Suspect]
     Indication: COLORECTAL CANCER METASTATIC
     Route: 048
     Dates: start: 20111110, end: 20111216
  2. CAPECITABINE [Interacting]
     Route: 048
     Dates: start: 20111216
  3. PHENYTOIN [Interacting]
     Indication: EPILEPSY
     Route: 048
     Dates: start: 20090726, end: 20111221
  4. PHENYTOIN [Interacting]
     Route: 048
     Dates: start: 20120131
  5. ATENOLOL [Concomitant]
     Route: 065
     Dates: start: 20090726, end: 20111221
  6. TAMSULOSIN [Concomitant]
     Dosage: BEFORE SLEEP
     Route: 065
     Dates: start: 20090726
  7. MAGNESIUM OXIDE [Concomitant]
     Route: 065
     Dates: start: 20090726
  8. SENNOSIDES [Concomitant]
     Dosage: BEFORE SLEEP
     Route: 065
     Dates: start: 20090726
  9. SILYMARIN [Concomitant]
     Route: 065
     Dates: start: 20111110
  10. ENTECAVIR [Concomitant]
     Dosage: AFTER FOOD
     Route: 065
     Dates: start: 20111110

REACTIONS (5)
  - Respiratory failure [Recovered/Resolved]
  - Bradycardia [Recovered/Resolved]
  - Hypotension [Recovered/Resolved]
  - Altered state of consciousness [Recovered/Resolved]
  - Drug interaction [Unknown]
